FAERS Safety Report 5095912-2 (Version None)
Quarter: 2006Q3

REPORT INFORMATION
  Report Type: 
  Country: None (occurrence: None)
  Receive Date: 20060905
  Receipt Date: 20040831
  Transmission Date: 20061208
  Serious: Yes (Hospitalization)
  Sender: FDA-Public Use
  Company Number: FR-BRISTOL-MYERS SQUIBB COMPANY-12689394

PATIENT
  Age: 86 Year
  Sex: Female

DRUGS (10)
  1. FUNGIZONE [Suspect]
     Route: 048
     Dates: end: 20040621
  2. DIDRONEL [Suspect]
     Route: 048
     Dates: end: 20040621
  3. NEO-MERCAZOLE TAB [Suspect]
     Route: 048
     Dates: end: 20040621
  4. SERESTA [Suspect]
     Route: 048
     Dates: start: 20040606, end: 20040621
  5. RISPERDAL [Suspect]
     Indication: DEMENTIA
     Route: 048
     Dates: start: 20040606, end: 20040621
  6. LASILIX [Suspect]
     Route: 048
     Dates: end: 20040625
  7. PREVISCAN [Concomitant]
     Dosage: INTERRUPTED ON 21-JUN-2004 AND RESUMED ON AN UNSPECIFIED DATE
  8. ZESTRIL [Concomitant]
     Dosage: INTERRUPTED ON 21-JUN-2004 AND RESUMED ON AN UNSPECIFIED DATE
  9. THEOSTAT [Concomitant]
     Dosage: INTERRUPTED ON 21-JUN-2004 AND RESUMED ON AN UNSPECIFIED DATE
  10. NEXXAIR [Concomitant]
     Dosage: INTERRUPTED ON 21-JUN-2004 AND RESUMED ON AN UNSPECIFIED DATE

REACTIONS (1)
  - DEPRESSED LEVEL OF CONSCIOUSNESS [None]
